FAERS Safety Report 11572675 (Version 1)
Quarter: 2015Q3

REPORT INFORMATION
  Report Type: Spontaneous
  Country: US (occurrence: US)
  Receive Date: 20150929
  Receipt Date: 20150929
  Transmission Date: 20151125
  Serious: Yes (Other)
  Sender: FDA-Public Use
  Company Number: US-AMGEN-USASP2015098827

PATIENT
  Age: 51 Year
  Sex: Female

DRUGS (1)
  1. PROLIA [Suspect]
     Active Substance: DENOSUMAB
     Indication: OSTEOPOROSIS
     Dosage: UNK
     Route: 065
     Dates: start: 201506

REACTIONS (10)
  - Rash [Not Recovered/Not Resolved]
  - Neuralgia [Unknown]
  - Nerve injury [Unknown]
  - Dyspepsia [Unknown]
  - Arthralgia [Unknown]
  - Stress fracture [Unknown]
  - Bone pain [Unknown]
  - Joint crepitation [Unknown]
  - Foot fracture [Unknown]
  - Bone disorder [Unknown]

NARRATIVE: CASE EVENT DATE: 2015
